FAERS Safety Report 5669226-3 (Version None)
Quarter: 2008Q1

REPORT INFORMATION
  Report Type: 
  Country: None (occurrence: None)
  Receive Date: 20080317
  Receipt Date: 20080311
  Transmission Date: 20080703
  Serious: Yes (Hospitalization)
  Sender: FDA-Public Use
  Company Number: FR-BRISTOL-MYERS SQUIBB COMPANY-14071443

PATIENT
  Age: 46 Year
  Sex: Female
  Weight: 68 kg

DRUGS (6)
  1. ORENCIA [Suspect]
     Indication: RHEUMATOID ARTHRITIS
     Dosage: FOURTH INFUSION ON 15-JAN-2008
     Dates: start: 20071119
  2. MODOPAR [Concomitant]
     Dosage: 125 MG IN THE MORNING AND THE EVENING
  3. TRIVASTAL [Concomitant]
  4. NOVATREX [Concomitant]
  5. CORTANCYL [Concomitant]
  6. DAFALGAN [Concomitant]

REACTIONS (2)
  - CHOREOATHETOSIS [None]
  - PARKINSON'S DISEASE [None]
